FAERS Safety Report 9830388 (Version 2)
Quarter: 2014Q1

REPORT INFORMATION
  Report Type: Spontaneous
  Country: SE (occurrence: SE)
  Receive Date: 20140120
  Receipt Date: 20140307
  Transmission Date: 20141002
  Serious: Yes (Other)
  Sender: FDA-Public Use
  Company Number: SE-ASTRAZENECA-2014SE03205

PATIENT
  Age: 37 Year
  Sex: Female

DRUGS (6)
  1. SEROQUEL DEPOT [Suspect]
     Indication: BIPOLAR II DISORDER
     Route: 048
  2. OVESTERIN [Concomitant]
     Route: 067
  3. KESTINE [Concomitant]
  4. LERGIGAN [Concomitant]
  5. LITHIONIT [Concomitant]
  6. LAMOTRIGIN [Concomitant]

REACTIONS (2)
  - Vaginal disorder [Unknown]
  - Urinary tract infection [Unknown]
